FAERS Safety Report 10344602 (Version 1)
Quarter: 2014Q3

REPORT INFORMATION
  Report Type: Spontaneous
  Country: US (occurrence: None)
  Receive Date: 20140724
  Receipt Date: 20140724
  Transmission Date: 20150326
  Serious: Yes (Other)
  Sender: FDA-Public Use
  Company Number: None

PATIENT
  Age: 71 Year
  Sex: Female
  Weight: 101.15 kg

DRUGS (1)
  1. NITROFURANTOIN. [Suspect]
     Active Substance: NITROFURANTOIN
     Dosage: 100 MG TWICE DAILY  TWICE DAILY TAKEN BY MOUTH
     Route: 048

REACTIONS (3)
  - Product physical issue [None]
  - Drug effect decreased [None]
  - Incorrect dose administered [None]

NARRATIVE: CASE EVENT DATE: 20140714
